FAERS Safety Report 7590545-8 (Version None)
Quarter: 2011Q3

REPORT INFORMATION
  Report Type: 
  Country: None (occurrence: None)
  Receive Date: 20110705
  Receipt Date: 20100519
  Transmission Date: 20111222
  Serious: No
  Sender: FDA-Public Use
  Company Number: US-BAYER-201023741NA

PATIENT
  Sex: Female

DRUGS (2)
  1. ZANTREX-3 [Concomitant]
  2. DROSPIRENONE AND ETHINYL ESTRADIOL [Suspect]

REACTIONS (2)
  - CHEST PAIN [None]
  - ERYTHEMA [None]
